FAERS Safety Report 26051515 (Version 5)
Quarter: 2025Q4

REPORT INFORMATION
  Report Type: Report from Study
  Country: EU (occurrence: EU)
  Receive Date: 20251117
  Receipt Date: 20251203
  Transmission Date: 20260117
  Serious: Yes (Death, Hospitalization)
  Sender: ABBVIE
  Company Number: EU-ABBVIE-6549969

PATIENT
  Age: 77 Year
  Sex: Male

DRUGS (2)
  1. FOSCARBIDOPA\FOSLEVODOPA [Suspect]
     Active Substance: FOSCARBIDOPA\FOSLEVODOPA
     Indication: Parkinson^s disease
     Dosage: CR 0.41ML/H; CR HIGH 0.44ML/H; CR LOW 0.26ML/H; ED 0.20ML
     Route: 058
     Dates: start: 20240319, end: 20251113
  2. FOSCARBIDOPA\FOSLEVODOPA [Suspect]
     Active Substance: FOSCARBIDOPA\FOSLEVODOPA
     Dosage: CR 0.41ML/H; CR HIGH 0.44ML/H; CR LOW 0.26ML/H; ED 0.20ML
     Route: 058
     Dates: start: 20251115

REACTIONS (7)
  - General physical health deterioration [Fatal]
  - Infusion site abscess [Recovering/Resolving]
  - Weight decreased [Unknown]
  - Dysstasia [Unknown]
  - Hallucination [Not Recovered/Not Resolved]
  - Confusional state [Not Recovered/Not Resolved]
  - Product use complaint [Unknown]

NARRATIVE: CASE EVENT DATE: 20251009
